FAERS Safety Report 26090616 (Version 1)
Quarter: 2025Q4

REPORT INFORMATION
  Report Type: Spontaneous
  Country: JP (occurrence: JP)
  Receive Date: 20251126
  Receipt Date: 20251126
  Transmission Date: 20260118
  Serious: Yes (Hospitalization, Other)
  Sender: Phathom Pharmaceuticals
  Company Number: JP-PHATHOM PHARMACEUTICALS INC.-2025PHT03389

PATIENT
  Age: 79 Year
  Sex: Female

DRUGS (1)
  1. VONOPRAZAN FUMARATE [Suspect]
     Active Substance: VONOPRAZAN FUMARATE
     Indication: Gastrooesophageal reflux disease
     Route: 048

REACTIONS (6)
  - Hypocalcaemia [Unknown]
  - Hypomagnesaemia [Unknown]
  - Seizure [Unknown]
  - Fall [Unknown]
  - Contusion [Unknown]
  - Cerebral haemorrhage [Unknown]
